FAERS Safety Report 4952446-0 (Version None)
Quarter: 2006Q1

REPORT INFORMATION
  Report Type: 
  Country: None (occurrence: None)
  Receive Date: 20060317
  Receipt Date: 20060227
  Transmission Date: 20060701
  Serious: Yes (Hospitalization)
  Sender: FDA-Public Use
  Company Number: ES200603000045

PATIENT
  Age: 62 Year
  Sex: Female

DRUGS (5)
  1. FORTEO [Suspect]
     Indication: OSTEOPOROSIS
     Dosage: 20 UG, DAILY (1/D), SUBCUTANEOUS
     Route: 058
     Dates: start: 20051001, end: 20060220
  2. FORTEO PEN                    (FORTEO PEN 250 MCG/ML (3ML)) [Concomitant]
  3. EUTIROX (LEVOTHYROXINE) [Concomitant]
  4. DAONIL N (GLIBENCLAMIDE) [Concomitant]
  5. CARDURAN (DOXAZOSIN MESILATE) [Concomitant]

REACTIONS (4)
  - JAUNDICE [None]
  - RENAL COLIC [None]
  - THERAPY NON-RESPONDER [None]
  - YELLOW SKIN [None]
